FAERS Safety Report 18274349 (Version 1)
Quarter: 2020Q3

REPORT INFORMATION
  Report Type: Other
  Country: IT (occurrence: IT)
  Receive Date: 20200916
  Receipt Date: 20200916
  Transmission Date: 20201103
  Serious: Yes (Death)
  Sender: FDA-Public Use
  Company Number: IT-VALIDUS PHARMACEUTICALS LLC-IT-2020VAL000757

PATIENT

DRUGS (4)
  1. CARDIRENE [Concomitant]
     Active Substance: ASPIRIN DL-LYSINE
     Indication: PRODUCT USED FOR UNKNOWN INDICATION
     Dosage: UNK
  2. TORASEMIDE [Suspect]
     Active Substance: TORSEMIDE
     Indication: OEDEMA PERIPHERAL
     Dosage: 10 MG, QD
     Route: 048
  3. NOVONORM [Concomitant]
     Active Substance: REPAGLINIDE
     Indication: PRODUCT USED FOR UNKNOWN INDICATION
     Dosage: UNK
  4. LASIX [Suspect]
     Active Substance: FUROSEMIDE
     Indication: OEDEMA PERIPHERAL
     Dosage: 100 MG, QD
     Route: 048

REACTIONS (2)
  - Hyponatraemia [Fatal]
  - Circumstance or information capable of leading to medication error [Unknown]

NARRATIVE: CASE EVENT DATE: 20200809
